FAERS Safety Report 21133527 (Version 1)
Quarter: 2022Q3

REPORT INFORMATION
  Report Type: Spontaneous
  Country: CN (occurrence: None)
  Receive Date: 20220726
  Receipt Date: 20220726
  Transmission Date: 20221027
  Serious: Yes (Other)
  Sender: FDA-Public Use
  Company Number: CN-ROCHE-3143478

PATIENT
  Age: 43 Year
  Sex: Male

DRUGS (18)
  1. GAZYVA [Suspect]
     Active Substance: OBINUTUZUMAB
     Indication: Diffuse large B-cell lymphoma stage IV
     Dosage: GB + COP
     Route: 042
     Dates: start: 20220414
  2. GAZYVA [Suspect]
     Active Substance: OBINUTUZUMAB
     Dosage: G + DHAP, 07-MAY-2022 AND 06-JUN-2022
     Route: 042
  3. RITUXIMAB [Concomitant]
     Active Substance: RITUXIMAB
     Indication: Diffuse large B-cell lymphoma stage IV
     Dosage: R-CDOP, 06-DEC-2021, 28-DEC-2021 AND 18-FEB-2022, NON-ROCHE DRUG
     Route: 065
  4. DOXORUBICIN HYDROCHLORIDE [Concomitant]
     Active Substance: DOXORUBICIN HYDROCHLORIDE
     Indication: Diffuse large B-cell lymphoma stage IV
     Dosage: R-CDOP, 06-DEC-2021, 28-DEC-2021 AND 18-FEB-2022
  5. VINDESINE [Concomitant]
     Active Substance: VINDESINE
     Indication: Diffuse large B-cell lymphoma stage IV
     Dosage: R-CDOP, 06-DEC-2021, 28-DEC-2021 AND 18-FEB-2022
  6. VINDESINE [Concomitant]
     Active Substance: VINDESINE
     Dosage: GB + COP
     Dates: start: 20220414
  7. CYCLOPHOSPHAMIDE [Concomitant]
     Active Substance: CYCLOPHOSPHAMIDE
     Indication: Diffuse large B-cell lymphoma stage IV
     Dosage: R-CDOP, 06-DEC-2021, 28-DEC-2021 AND 18-FEB-2022
  8. CYCLOPHOSPHAMIDE [Concomitant]
     Active Substance: CYCLOPHOSPHAMIDE
     Dosage: GB + COP
     Dates: start: 20220414
  9. PREDNISONE ACETATE [Concomitant]
     Active Substance: PREDNISONE ACETATE
     Indication: Diffuse large B-cell lymphoma stage IV
     Dosage: R-CDOP, 06-DEC-2021, 28-DEC-2021 AND 18-FEB-2022
  10. PREDNISONE ACETATE [Concomitant]
     Active Substance: PREDNISONE ACETATE
     Dosage: GB + COP
     Dates: start: 20220414
  11. METHOTREXATE [Concomitant]
     Active Substance: METHOTREXATE
     Indication: Diffuse large B-cell lymphoma stage IV
     Route: 037
  12. DEXAMETHASONE [Concomitant]
     Active Substance: DEXAMETHASONE
     Indication: Diffuse large B-cell lymphoma stage IV
     Route: 037
  13. DEXAMETHASONE [Concomitant]
     Active Substance: DEXAMETHASONE
     Dosage: G + DHAP, 07-MAY-2022 AND 06-JUN-2022
  14. CYTARABINE [Concomitant]
     Active Substance: CYTARABINE
     Indication: Diffuse large B-cell lymphoma stage IV
     Route: 037
  15. CYTARABINE [Concomitant]
     Active Substance: CYTARABINE
     Dosage: G + DHAP
     Dates: start: 20220507
  16. CYTARABINE [Concomitant]
     Active Substance: CYTARABINE
     Dosage: G + DHAP
     Dates: start: 20220606
  17. BENDAMUSTINE [Concomitant]
     Active Substance: BENDAMUSTINE
     Indication: Diffuse large B-cell lymphoma stage IV
     Dosage: GB + COP
     Dates: start: 20220414
  18. CISPLATIN [Concomitant]
     Active Substance: CISPLATIN
     Indication: Diffuse large B-cell lymphoma stage IV
     Dosage: G + DHAP, 07-MAY-2022 AND 06-JUN-2022

REACTIONS (5)
  - Off label use [Unknown]
  - Myelosuppression [Unknown]
  - Agranulocytosis [Unknown]
  - Pyrexia [Unknown]
  - Pneumonia [Unknown]

NARRATIVE: CASE EVENT DATE: 20220523
